FAERS Safety Report 8771480 (Version 1)
Quarter: 2012Q4

REPORT INFORMATION
  Report Type: 
  Country: JP (occurrence: JP)
  Receive Date: 20120906
  Receipt Date: 20120906
  Transmission Date: 20130627
  Serious: Yes (Death)
  Sender: FDA-Public Use
  Company Number: JP-ROCHE-1115773

PATIENT
  Age: 83 Year
  Sex: Male

DRUGS (2)
  1. XELODA [Suspect]
     Indication: RECTAL CANCER
     Route: 048
     Dates: start: 20120130, end: 20120302
  2. ELPLAT [Concomitant]
     Indication: RECTAL CANCER
     Route: 041
     Dates: start: 20120130, end: 20120302

REACTIONS (1)
  - Rectal cancer [Fatal]
